FAERS Safety Report 12601731 (Version 1)
Quarter: 2016Q3

REPORT INFORMATION
  Report Type: Spontaneous
  Country: US (occurrence: None)
  Receive Date: 20160727
  Receipt Date: 20160727
  Transmission Date: 20161109
  Serious: Yes (Disabling, Other)
  Sender: FDA-Public Use
  Company Number: None

PATIENT
  Age: 51 Year
  Sex: Female
  Weight: 70.31 kg

DRUGS (11)
  1. SODIUM CHLORIDE. [Concomitant]
     Active Substance: SODIUM CHLORIDE
  2. ZYVOX [Suspect]
     Active Substance: LINEZOLID
     Indication: STAPHYLOCOCCAL INFECTION
     Dosage: 600MG TWICE A DAY EVERY 12 HOURS BY MOUTH
     Route: 048
     Dates: start: 20160616, end: 20160617
  3. ABILIFY [Concomitant]
     Active Substance: ARIPIPRAZOLE
  4. KLONOPIN [Concomitant]
     Active Substance: CLONAZEPAM
  5. LOPRESSOR [Concomitant]
     Active Substance: METOPROLOL TARTRATE
  6. VENTOLIN [Concomitant]
     Active Substance: ALBUTEROL SULFATE
  7. LOVASTATIN. [Concomitant]
     Active Substance: LOVASTATIN
  8. GABAPENTIN. [Concomitant]
     Active Substance: GABAPENTIN
  9. AMPHETAMINE SALTS [Concomitant]
     Active Substance: AMPHETAMINE ASPARTATE\AMPHETAMINE SULFATE\DEXTROAMPHETAMINE SACCHARATE\DEXTROAMPHETAMINE SULFATE
  10. ALBUTERAL [Concomitant]
     Active Substance: ALBUTEROL
  11. LEXAPRO [Concomitant]
     Active Substance: ESCITALOPRAM OXALATE

REACTIONS (4)
  - Palpitations [None]
  - Feeling abnormal [None]
  - Dyspnoea [None]
  - Apparent death [None]

NARRATIVE: CASE EVENT DATE: 20160616
